FAERS Safety Report 7235252-6 (Version None)
Quarter: 2011Q1

REPORT INFORMATION
  Report Type: 
  Country: None (occurrence: None)
  Receive Date: 20110120
  Receipt Date: 20110114
  Transmission Date: 20110831
  Serious: No
  Sender: FDA-Public Use
  Company Number: JP-JNJFOC-20101200632

PATIENT
  Sex: Male

DRUGS (12)
  1. MORPHINE HYDROCHLORIDE [Concomitant]
     Route: 048
  2. NORTRIPTYLINE HCL [Concomitant]
     Route: 048
  3. FLURBIPROFEN [Concomitant]
     Route: 065
  4. LIDOCAINE HYDROCHLORIDE IN PLASTIC CONTAINER [Concomitant]
     Route: 065
  5. DUROTEP MT [Suspect]
     Indication: PAIN
     Route: 062
  6. MORPHINE HYDROCHLORIDE [Concomitant]
     Indication: PAIN
     Route: 048
  7. MORPHINE HYDROCHLORIDE [Concomitant]
     Route: 048
  8. BONALON [Concomitant]
     Route: 048
  9. ONEALFA [Concomitant]
     Route: 048
  10. MELDEST [Concomitant]
     Route: 048
  11. MORPHINE HYDROCHLORIDE [Concomitant]
     Route: 048
  12. MORPHINE HYDROCHLORIDE [Concomitant]
     Route: 048

REACTIONS (1)
  - DRUG PRESCRIBING ERROR [None]
